FAERS Safety Report 9693323 (Version 2)
Quarter: 2014Q1

REPORT INFORMATION
  Report Type: Report from Study
  Country: DE (occurrence: DE)
  Receive Date: 20131118
  Receipt Date: 20140214
  Transmission Date: 20141002
  Serious: Yes (Hospitalization)
  Sender: FDA-Public Use
  Company Number: DE-ROCHE-1302258

PATIENT
  Age: 23 Year
  Sex: Female
  Weight: 57.4 kg

DRUGS (8)
  1. BEVACIZUMAB [Suspect]
     Indication: COLON CANCER
     Dosage: LAST DOSE PRIOR TO SAE 21/JAN/2014
     Route: 042
     Dates: start: 20130204
  2. OXALIPLATIN [Suspect]
     Indication: COLON CANCER
     Dosage: LAST DOSE PRIOR  TO THE EVENT ON 16/JUL/2013
     Route: 042
     Dates: start: 20130204
  3. IRINOTECAN HYDROCHLORIDE [Suspect]
     Indication: COLON CANCER
     Dosage: LAST DOSE PRIOR  TO THE EVENT ON 16/JUL/2013
     Route: 042
     Dates: start: 20130204
  4. FLUOROURACIL [Suspect]
     Indication: COLON CANCER
     Dosage: LAST DOSE PRIOR TO SAE 04/FEB/2014
     Route: 042
     Dates: start: 20130806
  5. FOLINIC ACID [Suspect]
     Indication: COLON CANCER
     Dosage: LAST DOSE PRIOR TO SAE 04/FEB/2014
     Route: 042
     Dates: start: 20130806
  6. ONDANSETRON [Concomitant]
     Indication: NAUSEA
     Route: 048
     Dates: start: 20130204, end: 20140204
  7. DEXAMETHASON [Concomitant]
     Indication: NAUSEA
     Route: 048
     Dates: start: 20130204
  8. APREPITANT [Concomitant]
     Indication: NAUSEA
     Route: 048
     Dates: start: 20130204

REACTIONS (5)
  - Pharyngitis [Recovered/Resolved]
  - Agranulocytosis [Recovered/Resolved]
  - Leukopenia [Recovered/Resolved]
  - Abdominal pain [Recovered/Resolved]
  - Nausea [Unknown]
